FAERS Safety Report 8952315 (Version 1)
Quarter: 2012Q4

REPORT INFORMATION
  Report Type: 
  Country: US (occurrence: US)
  Receive Date: 20121205
  Receipt Date: 20121205
  Transmission Date: 20130627
  Serious: Yes (Hospitalization)
  Sender: FDA-Public Use
  Company Number: US-BAYER-2012-127013

PATIENT
  Age: 70 Year
  Sex: Female
  Weight: 72.56 kg

DRUGS (2)
  1. BETASERON [Suspect]
     Indication: MULTIPLE SCLEROSIS
     Dosage: 0.25 mg, QOD
     Route: 058
  2. MULTIVITAMIN [Concomitant]
     Route: 048

REACTIONS (1)
  - Pneumonia [Unknown]
